FAERS Safety Report 12634735 (Version 3)
Quarter: 2016Q3

REPORT INFORMATION
  Report Type: Spontaneous
  Country: US (occurrence: US)
  Receive Date: 20160808
  Receipt Date: 20160829
  Transmission Date: 20161109
  Serious: No
  Sender: FDA-Public Use
  Company Number: US-PFIZER INC-2016376126

PATIENT
  Age: 69 Year
  Sex: Male
  Weight: 77.11 kg

DRUGS (4)
  1. ALTACE [Suspect]
     Active Substance: RAMIPRIL
     Indication: HYPERTENSION
     Dosage: 5 MG, 1X/DAY (IN THE MORNING)
     Route: 048
  2. DILTIAZEM. [Concomitant]
     Active Substance: DILTIAZEM
     Indication: ATRIAL FIBRILLATION
     Dosage: UNK (IN THE MORNING)
  3. ALTACE [Suspect]
     Active Substance: RAMIPRIL
     Dosage: 5 MG, EVERY SECOND DAY
     Route: 048
  4. VALIUM [Suspect]
     Active Substance: DIAZEPAM
     Dosage: UNK (AT AN LOW DOSE)

REACTIONS (1)
  - Dizziness [Not Recovered/Not Resolved]
